FAERS Safety Report 17641836 (Version 1)
Quarter: 2020Q2

REPORT INFORMATION
  Report Type: Report from Study
  Country: US (occurrence: US)
  Receive Date: 20200408
  Receipt Date: 20200408
  Transmission Date: 20200713
  Serious: Yes (Other)
  Sender: FDA-Public Use
  Company Number: US-ROCHE-2575817

PATIENT
  Sex: Male

DRUGS (1)
  1. ACTEMRA [Suspect]
     Active Substance: TOCILIZUMAB
     Indication: CATARACT
     Dosage: EVERY 7 DAY(S) ONCE WE
     Route: 058

REACTIONS (4)
  - Intentional product use issue [Unknown]
  - Off label use [Unknown]
  - Nephrolithiasis [Unknown]
  - Cataract [Unknown]
